FAERS Safety Report 16460610 (Version 3)
Quarter: 2020Q2

REPORT INFORMATION
  Report Type: Spontaneous
  Country: US (occurrence: US)
  Receive Date: 20190620
  Receipt Date: 20200513
  Transmission Date: 20200713
  Serious: No
  Sender: FDA-Public Use
  Company Number: US-SA-2019SA166422

PATIENT
  Age: 51 Year
  Sex: Male

DRUGS (10)
  1. CIPROFLOXACIN. [Concomitant]
     Active Substance: CIPROFLOXACIN
  2. DUPIXENT [Suspect]
     Active Substance: DUPILUMAB
     Indication: DERMATITIS ATOPIC
     Dosage: 300 MG, QOW
     Route: 058
     Dates: start: 20190215
  3. CLOBETASOL [Concomitant]
     Active Substance: CLOBETASOL
  4. METRONIDAZOLE. [Concomitant]
     Active Substance: METRONIDAZOLE
  5. FLAGYL [Concomitant]
     Active Substance: METRONIDAZOLE\METRONIDAZOLE HYDROCHLORIDE
  6. MELOXICAM. [Concomitant]
     Active Substance: MELOXICAM
  7. LISINOPRIL. [Concomitant]
     Active Substance: LISINOPRIL
  8. TACROLIMUS. [Concomitant]
     Active Substance: TACROLIMUS
  9. METHYLPRED [Concomitant]
     Active Substance: METHYLPREDNISOLONE
  10. DOXYCYCLINE HCL [Concomitant]
     Active Substance: DOXYCYCLINE HYDROCHLORIDE

REACTIONS (4)
  - Dermatitis atopic [Not Recovered/Not Resolved]
  - Sleep disorder [Not Recovered/Not Resolved]
  - Rash [Not Recovered/Not Resolved]
  - Pruritus [Not Recovered/Not Resolved]

NARRATIVE: CASE EVENT DATE: 20191016
